FAERS Safety Report 6723721-4 (Version None)
Quarter: 2010Q2

REPORT INFORMATION
  Report Type: 
  Country: None (occurrence: None)
  Receive Date: 20100513
  Receipt Date: 20100503
  Transmission Date: 20101027
  Serious: Yes (Hospitalization)
  Sender: FDA-Public Use
  Company Number: US-WATSON-2009-11134

PATIENT
  Sex: Female

DRUGS (1)
  1. FENTANYL-75 [Suspect]
     Indication: DRUG USE FOR UNKNOWN INDICATION
     Dosage: 1 PATCH Q 72 HRS
     Route: 062
     Dates: start: 20091101

REACTIONS (6)
  - CAUSTIC INJURY [None]
  - DIZZINESS [None]
  - HEADACHE [None]
  - NAUSEA [None]
  - OVERDOSE [None]
  - VOMITING [None]
